FAERS Safety Report 24429036 (Version 1)
Quarter: 2024Q4

REPORT INFORMATION
  Report Type: Spontaneous
  Country: US (occurrence: US)
  Receive Date: 20241011
  Receipt Date: 20241011
  Transmission Date: 20250114
  Serious: Yes (Hospitalization, Other)
  Sender: ANI
  Company Number: US-ANIPHARMA-2024-US-053629

PATIENT
  Age: 54 Year
  Sex: Female

DRUGS (2)
  1. BENAZEPRIL HYDROCHLORIDE [Suspect]
     Active Substance: BENAZEPRIL HYDROCHLORIDE
     Indication: Product used for unknown indication
     Dosage: 60-DAY SUPPLY
  2. AMLODIPINE [Suspect]
     Active Substance: AMLODIPINE BESYLATE
     Indication: Product used for unknown indication
     Dosage: 60-DAY SUPPLY

REACTIONS (1)
  - Distributive shock [Recovered/Resolved]
